FAERS Safety Report 11838353 (Version 2)
Quarter: 2016Q1

REPORT INFORMATION
  Report Type: Spontaneous
  Country: US (occurrence: US)
  Receive Date: 20151215
  Receipt Date: 20160213
  Transmission Date: 20160525
  Serious: No
  Sender: FDA-Public Use
  Company Number: ALCN2015US007781

PATIENT
  Sex: Male

DRUGS (1)
  1. ICAPS LO [Suspect]
     Active Substance: MINERALS\VITAMINS
     Indication: NUTRITIONAL SUPPLEMENTATION
     Dosage: 1 CAPSULE, QD
     Route: 048
     Dates: start: 201511, end: 201512

REACTIONS (1)
  - Product taste abnormal [Recovered/Resolved]
